FAERS Safety Report 4360361-9 (Version None)
Quarter: 2004Q2

REPORT INFORMATION
  Report Type: 
  Country: None (occurrence: None)
  Receive Date: 20040514
  Receipt Date: 20040506
  Transmission Date: 20050107
  Serious: Yes (Death)
  Sender: FDA-Public Use
  Company Number: 2004AP02278

PATIENT
  Age: 79 Year
  Sex: Male

DRUGS (15)
  1. IRESSA [Suspect]
     Indication: NON-SMALL CELL LUNG CANCER
     Dosage: 250 MG DAILY PO
     Route: 048
     Dates: start: 20040220, end: 20040417
  2. ADALAT [Concomitant]
  3. TENORMIN [Concomitant]
  4. DEPAS [Concomitant]
  5. MUCOSAL [Concomitant]
  6. HARNAL [Concomitant]
  7. BUP-4 [Concomitant]
  8. ETODOLAC [Concomitant]
  9. LASIX [Concomitant]
  10. ALDACTONE [Concomitant]
  11. LENDORM [Concomitant]
  12. ASPIRIN [Concomitant]
  13. RADIATION THERAPY [Concomitant]
  14. DOCETAXEL [Concomitant]
  15. CARBOPLATIN [Concomitant]

REACTIONS (10)
  - CYANOSIS [None]
  - DISORIENTATION [None]
  - DRUG INEFFECTIVE [None]
  - ELECTROCARDIOGRAM ABNORMAL [None]
  - EXCITABILITY [None]
  - HEART RATE DECREASED [None]
  - INTERSTITIAL LUNG DISEASE [None]
  - RASH ERYTHEMATOUS [None]
  - RESPIRATORY FAILURE [None]
  - RESTLESSNESS [None]
